FAERS Safety Report 7919439-2 (Version None)
Quarter: 2011Q4

REPORT INFORMATION
  Report Type: 
  Country: None (occurrence: None)
  Receive Date: 20111116
  Receipt Date: 20111116
  Transmission Date: 20120403
  Serious: Yes (Hospitalization)
  Sender: FDA-Public Use
  Company Number: None

PATIENT
  Age: 54 Year
  Sex: Female
  Weight: 62.7 kg

DRUGS (4)
  1. GILENYA [Suspect]
     Indication: MULTIPLE SCLEROSIS
     Dosage: GILENYA 0.5 MG PO  15 JULY - 18 OCT
     Route: 048
  2. CEFTRIAXONE [Suspect]
     Indication: PHARYNGITIS
     Dosage: CEFTRIAXONE 1 G IM   25 OCT - UNCLEAR
     Route: 030
  3. NAPROXEN [Concomitant]
  4. IBUPROFEN [Concomitant]

REACTIONS (6)
  - CONFUSIONAL STATE [None]
  - MENINGITIS HERPES [None]
  - AMNESIA [None]
  - PHARYNGITIS [None]
  - MALAISE [None]
  - MENINGITIS ASEPTIC [None]
